FAERS Safety Report 12352065 (Version 1)
Quarter: 2016Q2

REPORT INFORMATION
  Report Type: Spontaneous
  Country: FR (occurrence: FR)
  Receive Date: 20160510
  Receipt Date: 20160510
  Transmission Date: 20160815
  Serious: Yes (Death)
  Sender: FDA-Public Use
  Company Number: FR-009507513-1605FRA002111

PATIENT
  Sex: Male

DRUGS (13)
  1. CILASTATIN SODIUM (+) IMIPENEM [Suspect]
     Active Substance: CILASTATIN SODIUM\IMIPENEM
     Indication: LUNG DISORDER
     Dosage: 1 G, QID
     Route: 042
     Dates: start: 20160313, end: 20160315
  2. MOLSIDOMINE [Concomitant]
     Active Substance: MOLSIDOMINE
  3. AMIKACINE MYLAN [Suspect]
     Active Substance: AMIKACIN
     Indication: LUNG DISORDER
     Dosage: 2.5 G, QD
     Route: 042
     Dates: start: 20160313, end: 20160316
  4. PROPOFOL. [Suspect]
     Active Substance: PROPOFOL
     Indication: SEDATION
     Dosage: UNK
     Route: 042
     Dates: start: 20160307, end: 20160318
  5. KARDEGIC [Concomitant]
     Active Substance: ASPIRIN LYSINE
  6. EZETIMIBE MSD [Concomitant]
  7. INVANZ [Suspect]
     Active Substance: ERTAPENEM SODIUM
     Indication: LUNG DISORDER
     Dosage: 1 G, QD
     Route: 042
     Dates: start: 20160316, end: 20160317
  8. PERINDOPRIL [Concomitant]
     Active Substance: PERINDOPRIL
  9. SIMVASTATIN. [Concomitant]
     Active Substance: SIMVASTATIN
  10. SUFENTANIL [Suspect]
     Active Substance: SUFENTANIL
     Indication: PAIN
     Dosage: UNK
     Route: 042
     Dates: start: 20160307, end: 20160318
  11. ACEBUTOLOL [Concomitant]
     Active Substance: ACEBUTOLOL
  12. VANCOMYCIN MYLAN [Suspect]
     Active Substance: VANCOMYCIN
     Indication: LUNG DISORDER
     Dosage: 1 G (LOAD) THEN 2.5 G QD
     Route: 042
     Dates: start: 20160313, end: 20160315
  13. MIDAZOLAM [Suspect]
     Active Substance: MIDAZOLAM\MIDAZOLAM HYDROCHLORIDE
     Indication: SEDATION
     Dosage: UNK
     Route: 042
     Dates: start: 20160307, end: 20160318

REACTIONS (1)
  - Thrombocytopenia [Fatal]
